FAERS Safety Report 20007107 (Version 28)
Quarter: 2025Q2

REPORT INFORMATION
  Report Type: Spontaneous
  Country: CA (occurrence: CA)
  Receive Date: 20211028
  Receipt Date: 20250609
  Transmission Date: 20250716
  Serious: Yes (Death, Life-Threatening, Hospitalization, Other)
  Sender: PFIZER
  Company Number: CA-MLMSERVICE-20211014-3168232-1

PATIENT
  Age: 30 Year
  Sex: Male
  Weight: 84 kg

DRUGS (9)
  1. PREGABALIN [Suspect]
     Active Substance: PREGABALIN
  2. OXAZEPAM [Suspect]
     Active Substance: OXAZEPAM
  3. DIAZEPAM [Suspect]
     Active Substance: DIAZEPAM
  4. CLONAZEPAM [Suspect]
     Active Substance: CLONAZEPAM
  5. NAPROXEN [Suspect]
     Active Substance: NAPROXEN
  6. METHYLPHENIDATE HYDROCHLORIDE [Suspect]
     Active Substance: METHYLPHENIDATE HYDROCHLORIDE
  7. NORTRIPTYLINE [Suspect]
     Active Substance: NORTRIPTYLINE
  8. TEMAZEPAM [Suspect]
     Active Substance: TEMAZEPAM
  9. OXYCODONE [Concomitant]
     Active Substance: OXYCODONE

REACTIONS (5)
  - Overdose [Fatal]
  - Drug abuse [Fatal]
  - Toxicity to various agents [Fatal]
  - Toxicity to various agents [Fatal]
  - Cardio-respiratory arrest [Fatal]

NARRATIVE: CASE EVENT DATE: 20180101
